FAERS Safety Report 11214610 (Version 2)
Quarter: 2015Q2

REPORT INFORMATION
  Report Type: Spontaneous
  Country: JP (occurrence: JP)
  Receive Date: 20150624
  Receipt Date: 20150629
  Transmission Date: 20150821
  Serious: Yes (Hospitalization)
  Sender: FDA-Public Use
  Company Number: PHJP2015JP010258

PATIENT
  Age: 78 Year
  Sex: Male

DRUGS (2)
  1. TASIGNA [Suspect]
     Active Substance: NILOTINIB
     Indication: CHRONIC MYELOID LEUKAEMIA
     Dosage: 450 MG, QD
     Route: 048
     Dates: end: 201502
  2. TASIGNA [Suspect]
     Active Substance: NILOTINIB
     Dosage: 500 MG, QD
     Route: 048
     Dates: start: 201502, end: 20150617

REACTIONS (1)
  - Electrocardiogram QT prolonged [Not Recovered/Not Resolved]

NARRATIVE: CASE EVENT DATE: 20150617
